FAERS Safety Report 12759991 (Version 2)
Quarter: 2016Q4

REPORT INFORMATION
  Report Type: Spontaneous
  Country: FR (occurrence: FR)
  Receive Date: 20160919
  Receipt Date: 20161012
  Transmission Date: 20170207
  Serious: Yes (Life-Threatening, Hospitalization, Other)
  Sender: FDA-Public Use
  Company Number: FR-IPSEN BIOPHARMACEUTICALS, INC.-2016-07678

PATIENT
  Sex: Male
  Weight: 83 kg

DRUGS (10)
  1. SERETIDE [Concomitant]
     Active Substance: FLUTICASONE PROPIONATE\SALMETEROL XINAFOATE
     Dosage: 1 DOSAGE FORM IN THE MORNING, ONE IN THE EVENING
     Route: 055
  2. ELIQUIS [Concomitant]
     Active Substance: APIXABAN
     Route: 048
  3. ATORVASTATINE [Concomitant]
     Active Substance: ATORVASTATIN
     Route: 048
  4. VENTOLINE [Concomitant]
     Active Substance: ALBUTEROL
     Dosage: IF NEEDED
     Route: 055
  5. BISOPROLOL [Concomitant]
     Active Substance: BISOPROLOL
     Route: 048
  6. METFORMINE [Concomitant]
     Active Substance: METFORMIN HYDROCHLORIDE
     Route: 048
  7. SOMATULINE L.P. 90MG [Suspect]
     Active Substance: LANREOTIDE ACETATE
     Indication: ACROMEGALY
     Dosage: 90 MG
     Route: 058
     Dates: start: 201604
  8. KARDEGIC [Concomitant]
     Active Substance: ASPIRIN LYSINE
     Route: 048
  9. RAMIPRIL. [Concomitant]
     Active Substance: RAMIPRIL
     Route: 048
  10. SPIRIVA [Concomitant]
     Active Substance: TIOTROPIUM BROMIDE MONOHYDRATE
     Route: 055

REACTIONS (13)
  - Chronic obstructive pulmonary disease [Recovered/Resolved]
  - Pseudomonas infection [Recovered/Resolved]
  - Pneumonia [Recovered/Resolved]
  - Coronary artery disease [Unknown]
  - Hypovolaemia [Unknown]
  - Cardiopulmonary failure [Recovered/Resolved]
  - Acute pulmonary oedema [Recovered/Resolved]
  - Coronary artery occlusion [Unknown]
  - Osteoporosis [Unknown]
  - Hypercapnia [Recovered/Resolved]
  - Cardio-respiratory arrest [Recovered/Resolved]
  - Ventricular arrhythmia [Unknown]
  - Spinal compression fracture [Unknown]

NARRATIVE: CASE EVENT DATE: 2016
